FAERS Safety Report 20532638 (Version 1)
Quarter: 2022Q1

REPORT INFORMATION
  Report Type: Spontaneous
  Country: US (occurrence: None)
  Receive Date: 20220301
  Receipt Date: 20220301
  Transmission Date: 20220423
  Serious: Yes (Hospitalization)
  Sender: FDA-Public Use
  Company Number: None

PATIENT
  Age: 30 Year
  Sex: Male

DRUGS (3)
  1. PROLIA [Suspect]
     Active Substance: DENOSUMAB
     Indication: Senile osteoporosis
     Dosage: OTHER FREQUENCY : EVERY 6 MONTHS;?
     Route: 058
     Dates: start: 201910
  2. PROLIA [Suspect]
     Active Substance: DENOSUMAB
     Indication: Lennox-Gastaut syndrome
  3. PROLIA [Suspect]
     Active Substance: DENOSUMAB
     Indication: Idiopathic generalised epilepsy

REACTIONS (1)
  - Infection [None]

NARRATIVE: CASE EVENT DATE: 20220225
